FAERS Safety Report 14058202 (Version 13)
Quarter: 2019Q1

REPORT INFORMATION
  Report Type: Spontaneous
  Country: US (occurrence: US)
  Receive Date: 20171006
  Receipt Date: 20190124
  Transmission Date: 20190417
  Serious: Yes (Other)
  Sender: FDA-Public Use
  Company Number: US-ACTELION-A-NJ2017-160283

PATIENT
  Age: 75 Year
  Sex: Male

DRUGS (13)
  1. CEPHALEXIN. [Concomitant]
     Active Substance: CEPHALEXIN
     Dosage: 250 MG, UNK
  2. VERAPAMIL [Concomitant]
     Active Substance: VERAPAMIL HYDROCHLORIDE
     Dosage: 40 MG, TID
  3. OPSUMIT [Suspect]
     Active Substance: MACITENTAN
     Indication: PULMONARY ARTERIAL HYPERTENSION
     Dosage: 10 MG, QD
     Route: 048
     Dates: start: 20170908
  4. OPSUMIT [Suspect]
     Active Substance: MACITENTAN
     Dosage: 10 MG, QD
     Route: 048
     Dates: start: 201710
  5. OXYCODONE ACTAVIS [Concomitant]
     Active Substance: OXYCODONE HYDROCHLORIDE
     Dosage: 5/325 MG DAILY
  6. TAMSULOSIN [Concomitant]
     Active Substance: TAMSULOSIN
     Dosage: 0.4 MG, UNK
  7. LABETALOL [Concomitant]
     Active Substance: LABETALOL\LABETALOL HYDROCHLORIDE
     Dosage: 100 MG, TID
  8. BENTYL [Concomitant]
     Active Substance: DICYCLOMINE HYDROCHLORIDE
     Dosage: 10 MG, QD
  9. LUTEIN [Concomitant]
     Active Substance: LUTEIN
     Dosage: 6 MG, UNK
  10. VITAMIN A + D [Concomitant]
     Dosage: 5000 IU/400 MG QD
  11. OXYCODONE AND ACETAMINOPHEN [Concomitant]
     Active Substance: ACETAMINOPHEN\OXYCODONE HYDROCHLORIDE
     Dosage: 5/325 Q5H, PRN
  12. FLEXERIL [Concomitant]
     Active Substance: CYCLOBENZAPRINE HYDROCHLORIDE
     Dosage: 10 MG, PRN
  13. ALOE VERA [Concomitant]
     Active Substance: ALOE VERA LEAF
     Dosage: 5000 MG, BID

REACTIONS (38)
  - Suicidal ideation [Unknown]
  - Product dose omission [Not Recovered/Not Resolved]
  - Respiratory disorder [Unknown]
  - Prostate infection [Not Recovered/Not Resolved]
  - Condition aggravated [Not Recovered/Not Resolved]
  - Abdominal pain [Not Recovered/Not Resolved]
  - Tooth infection [Recovered/Resolved]
  - Discontinued product administered [Unknown]
  - Oropharyngeal pain [Not Recovered/Not Resolved]
  - Unevaluable event [Unknown]
  - Eye irritation [Unknown]
  - Limb discomfort [Not Recovered/Not Resolved]
  - Musculoskeletal discomfort [Unknown]
  - Dyspnoea [Not Recovered/Not Resolved]
  - Cough [Unknown]
  - Chest discomfort [Unknown]
  - Muscle spasms [Unknown]
  - Bladder spasm [Not Recovered/Not Resolved]
  - Gait disturbance [Unknown]
  - Swelling [Not Recovered/Not Resolved]
  - Eye swelling [Unknown]
  - Influenza like illness [Not Recovered/Not Resolved]
  - Urinary tract infection [Not Recovered/Not Resolved]
  - Fluid retention [Not Recovered/Not Resolved]
  - Hypertension [Unknown]
  - Sneezing [Unknown]
  - Pain [Unknown]
  - Pain in extremity [Unknown]
  - Chest pain [Unknown]
  - Nasal congestion [Not Recovered/Not Resolved]
  - Prostatic specific antigen increased [Not Recovered/Not Resolved]
  - Diarrhoea [Not Recovered/Not Resolved]
  - Nasopharyngitis [Unknown]
  - Bronchitis [Not Recovered/Not Resolved]
  - Spider vein [Unknown]
  - Headache [Not Recovered/Not Resolved]
  - Abdominal pain upper [Unknown]
  - Oedema peripheral [Unknown]

NARRATIVE: CASE EVENT DATE: 201709
